FAERS Safety Report 4553400-3 (Version None)
Quarter: 2005Q1

REPORT INFORMATION
  Report Type: 
  Country: None (occurrence: None)
  Receive Date: 20050112
  Receipt Date: 20050104
  Transmission Date: 20050727
  Serious: Yes (Other)
  Sender: FDA-Public Use
  Company Number: 200510007BNE

PATIENT
  Age: 55 Year
  Sex: Male

DRUGS (4)
  1. DACARBAZINE [Suspect]
     Indication: HODGKIN'S DISEASE
  2. VINBLASTINE SULFATE [Suspect]
     Indication: HODGKIN'S DISEASE
  3. DOXORUBICIN HCL [Suspect]
     Indication: HODGKIN'S DISEASE
  4. BLEOMYCIN [Suspect]
     Indication: HODGKIN'S DISEASE

REACTIONS (2)
  - LIVER FUNCTION TEST ABNORMAL [None]
  - PERIPHERAL SENSORIMOTOR NEUROPATHY [None]
